FAERS Safety Report 4321899-3 (Version None)
Quarter: 2004Q1

REPORT INFORMATION
  Report Type: 
  Country: None (occurrence: None)
  Receive Date: 20040318
  Receipt Date: 20040302
  Transmission Date: 20041129
  Serious: Yes (Hospitalization)
  Sender: FDA-Public Use
  Company Number: 601128

PATIENT
  Age: 11 Year
  Sex: Female
  Weight: 37 kg

DRUGS (6)
  1. GAMMAGARD S/D [Suspect]
     Indication: NEUROPATHY PERIPHERAL
     Dosage: 37 GM; QD; INTRAVENOUS
     Route: 042
     Dates: start: 20040217, end: 20040218
  2. GAMMAGARD S/D [Suspect]
  3. GAMMAGARD S/D [Suspect]
  4. AZATIOPRIN [Concomitant]
  5. NEURONTIN [Concomitant]
  6. LOSEC MUPS [Concomitant]

REACTIONS (5)
  - HEADACHE [None]
  - MENINGITIS ASEPTIC [None]
  - MUSCULOSKELETAL STIFFNESS [None]
  - NAUSEA [None]
  - VOMITING [None]
